FAERS Safety Report 8361885-X (Version None)
Quarter: 2012Q2

REPORT INFORMATION
  Report Type: 
  Country: None (occurrence: None)
  Receive Date: 20120515
  Receipt Date: 20120504
  Transmission Date: 20120825
  Serious: Yes (Hospitalization)
  Sender: FDA-Public Use
  Company Number: DE-JNJFOC-20120506502

PATIENT
  Age: 33 Year
  Sex: Female
  Weight: 50 kg

DRUGS (6)
  1. REMICADE [Suspect]
     Route: 042
     Dates: start: 20071101, end: 20080901
  2. DIPYRONE TAB [Concomitant]
     Route: 065
     Dates: start: 20100315, end: 20100621
  3. REMICADE [Suspect]
     Route: 042
     Dates: start: 20090201
  4. FOLSAURE [Concomitant]
     Route: 065
  5. CLOTRIMAZOLE [Concomitant]
     Route: 065
  6. REMICADE [Suspect]
     Indication: CROHN'S DISEASE
     Route: 042
     Dates: start: 20100324, end: 20100531

REACTIONS (2)
  - ABORTION [None]
  - MATERNAL EXPOSURE DURING PREGNANCY [None]
